FAERS Safety Report 5621699-8 (Version None)
Quarter: 2008Q1

REPORT INFORMATION
  Report Type: 
  Country: None (occurrence: None)
  Receive Date: 20080201
  Receipt Date: 20080128
  Transmission Date: 20080703
  Serious: Yes (Death, Hospitalization, Other)
  Sender: FDA-Public Use
  Company Number: WAES 0708USA04134

PATIENT
  Age: 18 Year
  Sex: Female
  Weight: 51.7101 kg

DRUGS (20)
  1. CAP VORINOSTAT [Suspect]
     Indication: ACUTE MYELOID LEUKAEMIA
     Dosage: 400 MG/DAILY/PO; 400 MG/DAILY/PO
     Route: 048
     Dates: start: 20070726, end: 20070801
  2. CAP VORINOSTAT [Suspect]
     Indication: ACUTE MYELOID LEUKAEMIA
     Dosage: 400 MG/DAILY/PO; 400 MG/DAILY/PO
     Route: 048
     Dates: start: 20070825, end: 20070831
  3. INJ DECITABINE UNK [Suspect]
     Indication: ACUTE MYELOID LEUKAEMIA
     Dosage: 20 MG/M[2]/DAILY/PO; 20 MG/M[2]/DAILY/PO
     Route: 048
     Dates: start: 20070721, end: 20070725
  4. INJ DECITABINE UNK [Suspect]
     Indication: ACUTE MYELOID LEUKAEMIA
     Dosage: 20 MG/M[2]/DAILY/PO; 20 MG/M[2]/DAILY/PO
     Route: 048
     Dates: start: 20070820, end: 20070824
  5. CANCIDAS [Concomitant]
  6. DILAUDID [Concomitant]
  7. DURAGESIC-100 [Concomitant]
  8. MARINOL [Concomitant]
  9. MIRALAX [Concomitant]
  10. NORVASC [Concomitant]
  11. PROTONIX [Concomitant]
  12. REGLAN [Concomitant]
  13. SENOKOT [Concomitant]
  14. ZOFRAN [Concomitant]
  15. ALUMINUM HYDROXIDE (+) DIPHENHYD [Concomitant]
  16. CEFEPIME [Concomitant]
  17. MAGNESIUM CITRATE [Concomitant]
  18. MAGNESIUM OXIDE [Concomitant]
  19. POTASSIUM CHLORIDE [Concomitant]
  20. VORICONAZOLE [Concomitant]

REACTIONS (18)
  - ARRHYTHMIA [None]
  - ARTHRALGIA [None]
  - CAECITIS [None]
  - CELLULITIS [None]
  - CHEILITIS [None]
  - DYSPNOEA EXERTIONAL [None]
  - ERYTHEMA [None]
  - FEBRILE NEUTROPENIA [None]
  - HEADACHE [None]
  - HERPES SIMPLEX [None]
  - INSOMNIA [None]
  - LIP PAIN [None]
  - LIP SWELLING [None]
  - MALIGNANT NEOPLASM PROGRESSION [None]
  - ORAL HERPES [None]
  - PAIN IN EXTREMITY [None]
  - SINUS TACHYCARDIA [None]
  - TENDERNESS [None]
